FAERS Safety Report 25572869 (Version 1)
Quarter: 2025Q3

REPORT INFORMATION
  Report Type: Spontaneous
  Country: CA (occurrence: CA)
  Receive Date: 20250717
  Receipt Date: 20250717
  Transmission Date: 20251020
  Serious: Yes (Hospitalization)
  Sender: MERCK SHARP & DOHME LLC
  Company Number: CA-009507513-2310111

PATIENT
  Age: 56 Year
  Sex: Male

DRUGS (1)
  1. ERTAPENEM SODIUM [Suspect]
     Active Substance: ERTAPENEM SODIUM
     Route: 065

REACTIONS (5)
  - Asthenia [Unknown]
  - Blood creatinine decreased [Unknown]
  - Dizziness [Unknown]
  - Renal impairment [Unknown]
  - Fall [Unknown]
